FAERS Safety Report 13156009 (Version 1)
Quarter: 2017Q1

REPORT INFORMATION
  Report Type: Spontaneous
  Country: US (occurrence: US)
  Receive Date: 20170126
  Receipt Date: 20170126
  Transmission Date: 20170428
  Serious: No
  Sender: FDA-Public Use
  Company Number: US-ROCHE-746140

PATIENT
  Sex: Female

DRUGS (4)
  1. VALIUM [Suspect]
     Active Substance: DIAZEPAM
     Indication: SEDATIVE THERAPY
     Route: 065
  2. CARDIZEM [Suspect]
     Active Substance: DILTIAZEM HYDROCHLORIDE
     Indication: SEDATIVE THERAPY
     Dosage: AS NEEDED
     Route: 065
  3. BETAPACE [Suspect]
     Active Substance: SOTALOL HYDROCHLORIDE
     Indication: SEDATIVE THERAPY
     Route: 065
  4. TOPROL XL [Suspect]
     Active Substance: METOPROLOL SUCCINATE
     Indication: PRODUCT USED FOR UNKNOWN INDICATION
     Route: 065

REACTIONS (4)
  - Gastric disorder [Not Recovered/Not Resolved]
  - Heart rate decreased [Unknown]
  - Gastrooesophageal reflux disease [Not Recovered/Not Resolved]
  - Drug ineffective [Unknown]
